FAERS Safety Report 20899977 (Version 1)
Quarter: 2022Q2

REPORT INFORMATION
  Report Type: Report from Study
  Country: DE (occurrence: DE)
  Receive Date: 20220601
  Receipt Date: 20220601
  Transmission Date: 20220721
  Serious: Yes (Death, Hospitalization)
  Sender: FDA-Public Use
  Company Number: DE-ROCHE-2977555

PATIENT
  Age: 55 Year
  Sex: Female

DRUGS (3)
  1. METHOTREXATE [Suspect]
     Active Substance: METHOTREXATE
     Indication: Rheumatoid arthritis
     Route: 065
  2. LEFLUNOMIDE [Suspect]
     Active Substance: LEFLUNOMIDE
     Indication: Rheumatoid arthritis
     Dosage: UNIT DOSE : 20 MG , FREQUENCY TIME : 1 DAY
     Route: 065
     Dates: end: 202107
  3. RITUXIMAB [Suspect]
     Active Substance: RITUXIMAB
     Indication: Rheumatoid arthritis
     Dosage: MOST RECENT DOSE OF RITUXIMAB RECEIVED ON 10/JUN/2021 , UNIT DOSE : 1000 MG
     Route: 065
     Dates: start: 20210610

REACTIONS (4)
  - Septic shock [Fatal]
  - Cardiac procedure complication [Fatal]
  - Endocarditis [Recovered/Resolved]
  - Endocarditis bacterial [Recovered/Resolved]

NARRATIVE: CASE EVENT DATE: 20210701
